FAERS Safety Report 25740512 (Version 1)
Quarter: 2025Q3

REPORT INFORMATION
  Report Type: Other
  Country: EU (occurrence: EU)
  Receive Date: 20250829
  Receipt Date: 20250829
  Transmission Date: 20251020
  Serious: Yes (Other)
  Sender: INCYTE
  Company Number: None

PATIENT
  Age: 75 Year

DRUGS (1)
  1. TAFASITAMAB [Suspect]
     Active Substance: TAFASITAMAB
     Indication: Diffuse large B-cell lymphoma

REACTIONS (3)
  - Toxic skin eruption [Recovering/Resolving]
  - Sinonasal obstruction [Recovering/Resolving]
  - Muscular weakness [Recovering/Resolving]
